FAERS Safety Report 4607182-7 (Version None)
Quarter: 2005Q1

REPORT INFORMATION
  Report Type: 
  Country: None (occurrence: None)
  Receive Date: 20050311
  Receipt Date: 20050311
  Transmission Date: 20050727
  Serious: Yes (Hospitalization, Disabling)
  Sender: FDA-Public Use
  Company Number: None

PATIENT
  Age: 53 Year
  Sex: Female
  Weight: 117.9352 kg

DRUGS (3)
  1. HUMULIN 70/30 [Suspect]
     Dosage: 30 UNITS
  2. CELEBREX [Suspect]
     Dosage: 2X DAY
  3. VIOXX [Suspect]
     Dosage: 3 OR 4 TIMES DAY

REACTIONS (2)
  - ABASIA [None]
  - HEMIPLEGIA [None]
